FAERS Safety Report 5143162-3 (Version None)
Quarter: 2006Q4

REPORT INFORMATION
  Report Type: 
  Country: None (occurrence: None)
  Receive Date: 20061030
  Receipt Date: 20061017
  Transmission Date: 20070319
  Serious: Yes (Hospitalization)
  Sender: FDA-Public Use
  Company Number: 2006127379

PATIENT
  Age: 58 Year
  Sex: Male

DRUGS (4)
  1. LIPITOR [Suspect]
     Indication: HYPERCHOLESTEROLAEMIA
     Dosage: ORAL
     Route: 048
  2. OMEPRAZOLE [Concomitant]
  3. TETRAZEPAM (TETRAZEPAM) [Concomitant]
  4. LORAZEPAM [Concomitant]

REACTIONS (8)
  - AORTIC ARTERIOSCLEROSIS [None]
  - AORTITIS [None]
  - BACK PAIN [None]
  - CONSTIPATION [None]
  - HEPATIC STEATOSIS [None]
  - HYDRONEPHROSIS [None]
  - LYMPHOMA [None]
  - RETROPERITONEAL FIBROSIS [None]
